FAERS Safety Report 20691349 (Version 1)
Quarter: 2022Q2

REPORT INFORMATION
  Report Type: Spontaneous
  Country: US (occurrence: None)
  Receive Date: 20220406
  Receipt Date: 20220406
  Transmission Date: 20220721
  Serious: Yes (Hospitalization)
  Sender: FDA-Public Use
  Company Number: None

PATIENT
  Sex: Female

DRUGS (12)
  1. CIMZIA [Suspect]
     Active Substance: CERTOLIZUMAB PEGOL
     Indication: Psoriasis
     Dosage: 2 X 200 MG/ML?INJECT 400 MG (2 SYRINGES) UNDER THE SKIN (SUBCUTANEOUS INJECTION) EVERY OTHER WEEK (E
     Route: 058
     Dates: start: 20210421
  2. CALCIUM CITR TAB 200MG [Concomitant]
  3. CIMZIA PREFL KIT 200MG/ML [Concomitant]
  4. CLOBETASOL OIN 0.05% [Concomitant]
  5. CLOBETASOL SOL 0.05% [Concomitant]
  6. D3 CAP 1000UNIT [Concomitant]
  7. GONAL-F INJ 1050UNIT [Concomitant]
  8. MAG OXIDE TAB 400MG [Concomitant]
  9. NOVOLIN N INJ U-100 [Concomitant]
  10. NOVOLOG INJ FLEXPEN [Concomitant]
  11. OVIDREL INJ [Concomitant]
  12. ZOLOFT TAB 100MG [Concomitant]

REACTIONS (9)
  - Caesarean section [None]
  - Drug exposure before pregnancy [None]
  - Therapy interrupted [None]
  - Carpal tunnel syndrome [None]
  - Gestational diabetes [None]
  - Condition aggravated [None]
  - Arthralgia [None]
  - Pyrexia [None]
  - Hyperhidrosis [None]
